FAERS Safety Report 7500232-X (Version None)
Quarter: 2011Q2

REPORT INFORMATION
  Report Type: 
  Country: None (occurrence: None)
  Receive Date: 20110517
  Receipt Date: 20110510
  Transmission Date: 20111010
  Serious: Yes (Death, Hospitalization, Other)
  Sender: FDA-Public Use
  Company Number: GER/UKI/11/0018197

PATIENT
  Age: 19 Year
  Sex: Female

DRUGS (5)
  1. SITAXENTAN (SITAXENTAN) [Suspect]
     Indication: PRODUCT USED FOR UNKNOWN INDICATION
     Dosage: 100 MG, 1 D
  2. DOMPERIDONE (DOMPERIDONE) [Suspect]
     Indication: PRODUCT USED FOR UNKNOWN INDICATION
  3. AMOXICILLIN [Suspect]
     Indication: EAR INFECTION
  4. OMEPRAZOLE [Suspect]
     Indication: ILL-DEFINED DISORDER
  5. SILDENAFIL CITRATE [Suspect]
     Indication: PULMONARY ARTERIAL HYPERTENSION
     Dosage: 50 MG, 3 IN 1 D

REACTIONS (4)
  - BRAIN OEDEMA [None]
  - COAGULOPATHY [None]
  - HEPATIC NECROSIS [None]
  - ACUTE HEPATIC FAILURE [None]
